FAERS Safety Report 13166514 (Version 1)
Quarter: 2017Q1

REPORT INFORMATION
  Report Type: Spontaneous
  Country: US (occurrence: US)
  Receive Date: 20170126
  Receipt Date: 20170126
  Transmission Date: 20170428
  Serious: Yes (Disabling)
  Sender: FDA-Public Use
  Company Number: None

PATIENT
  Age: 45 Year
  Sex: Male
  Weight: 76.5 kg

DRUGS (3)
  1. IBUPROFIN [Concomitant]
  2. CENTRUM SPECIALIST HEART VITAMINS [Concomitant]
  3. KY DURATION FOR MEN [Suspect]
     Active Substance: LIDOCAINE
     Indication: PREMATURE EJACULATION
     Dosage: ?          QUANTITY:36 SPRAY(S);OTHER FREQUENCY:{10 SPRAYS PER USE;?
     Route: 062
     Dates: start: 20170113, end: 20170113

REACTIONS (11)
  - Burning sensation [None]
  - Discomfort [None]
  - Penis disorder [None]
  - Haemorrhage [None]
  - Sexual dysfunction [None]
  - Micturition disorder [None]
  - Nerve injury [None]
  - Erectile dysfunction [None]
  - Ejaculation disorder [None]
  - Haemorrhage urinary tract [None]
  - Disturbance in sexual arousal [None]

NARRATIVE: CASE EVENT DATE: 20170113
